FAERS Safety Report 5990335-3 (Version None)
Quarter: 2008Q4

REPORT INFORMATION
  Report Type: 
  Country: None (occurrence: None)
  Receive Date: 20081211
  Receipt Date: 20081201
  Transmission Date: 20090506
  Serious: Yes (Other)
  Sender: FDA-Public Use
  Company Number: GB-AMGEN-US322188

PATIENT
  Age: 66 Year
  Sex: Female

DRUGS (12)
  1. ENBREL [Suspect]
     Indication: RHEUMATOID ARTHRITIS
     Route: 058
  2. BACLOFEN [Concomitant]
     Route: 065
  3. CORSODYL [Concomitant]
     Dosage: UNKNOWN
     Route: 065
  4. CYCLIZINE [Concomitant]
     Route: 065
  5. MORPHINE SULFATE [Concomitant]
     Route: 065
  6. OMEPRAZOLE [Concomitant]
     Dosage: 20 MG (FREQUENCY UNKNOWN)
     Route: 065
  7. ACETAMINOPHEN [Concomitant]
     Dosage: AS NECESSARY (FREQUNCY UNKNOWN)
     Route: 065
  8. THYROXIN [Concomitant]
     Dosage: 200 UG (FREQUENCY UNKNOWN)
     Route: 065
  9. TIZANIDINE HYDROCHLORIDE [Concomitant]
     Route: 065
  10. ZOLPIDEM [Concomitant]
     Dosage: 10 MG AS NECESSARY
     Route: 065
  11. ARAVA [Concomitant]
     Route: 048
  12. ESTRADERM [Concomitant]
     Dosage: UNKNOWN
     Route: 065

REACTIONS (6)
  - EYE PRURITUS [None]
  - EYE SWELLING [None]
  - INJECTION SITE ERYTHEMA [None]
  - MALAISE [None]
  - PHARYNGEAL OEDEMA [None]
  - THROAT TIGHTNESS [None]
